FAERS Safety Report 6720500-9 (Version None)
Quarter: 2010Q2

REPORT INFORMATION
  Report Type: 
  Country: None (occurrence: None)
  Receive Date: 20100511
  Receipt Date: 20100503
  Transmission Date: 20101027
  Serious: Yes (Hospitalization, Other)
  Sender: FDA-Public Use
  Company Number: ES-MERCK-1005ESP00007

PATIENT
  Age: 26 Year
  Sex: Female

DRUGS (3)
  1. MAXALT [Suspect]
     Indication: MIGRAINE
     Route: 048
     Dates: start: 20070101, end: 20100101
  2. MAXALT [Suspect]
     Route: 048
     Dates: start: 20100101
  3. ZONISAMIDE [Suspect]
     Indication: PERSONALITY DISORDER
     Route: 065

REACTIONS (3)
  - BLOOD PROLACTIN INCREASED [None]
  - DRUG ABUSE [None]
  - HEADACHE [None]
